FAERS Safety Report 21932213 (Version 1)
Quarter: 2023Q1

REPORT INFORMATION
  Report Type: Spontaneous
  Country: US (occurrence: None)
  Receive Date: 20230131
  Receipt Date: 20230131
  Transmission Date: 20230417
  Serious: No
  Sender: FDA-Public Use
  Company Number: None

PATIENT
  Age: 84 Year
  Sex: Male

DRUGS (14)
  1. ABIRATERONE [Suspect]
     Active Substance: ABIRATERONE
     Indication: Prostate cancer
     Dosage: FREQUENCY : DAILY;?
     Route: 048
  2. PREDNISONE [Suspect]
     Active Substance: PREDNISONE
     Indication: Prostate cancer
     Dosage: FREQUENCY : TWICE A DAY;?
     Route: 048
  3. ATORVASTATIN [Concomitant]
  4. BICALUTAMIDE [Concomitant]
  5. BUMETANIDE [Concomitant]
  6. CLOPIDOGREL [Concomitant]
  7. LEVEMIR [Concomitant]
  8. LOSARTAN [Concomitant]
  9. METOLAZONE [Concomitant]
  10. METOPROLOL [Concomitant]
     Active Substance: METOPROLOL
  11. POTASSIUM CHLORID ER [Concomitant]
  12. VITAMIN D3 [Concomitant]
  13. YONSA [Concomitant]
     Active Substance: ABIRATERONE ACETATE
  14. ZYTIGA [Concomitant]

REACTIONS (1)
  - Blood glucose increased [None]
